FAERS Safety Report 8269652-2 (Version None)
Quarter: 2012Q2

REPORT INFORMATION
  Report Type: 
  Country: None (occurrence: None)
  Receive Date: 20120410
  Receipt Date: 20120403
  Transmission Date: 20120825
  Serious: Yes (Other)
  Sender: FDA-Public Use
  Company Number: JP-SP-2012-02119

PATIENT
  Sex: Male
  Weight: 70 kg

DRUGS (3)
  1. IMMUCYST [Suspect]
     Indication: BLADDER CANCER
     Route: 043
     Dates: start: 20110513, end: 20110914
  2. NORVASC [Concomitant]
     Indication: HYPERTENSION
     Route: 048
  3. LOXONIN [Concomitant]
     Route: 048

REACTIONS (2)
  - RENAL MASS [None]
  - PYREXIA [None]
